FAERS Safety Report 17363218 (Version 1)
Quarter: 2020Q1

REPORT INFORMATION
  Report Type: Spontaneous
  Country: US (occurrence: US)
  Receive Date: 20200203
  Receipt Date: 20200203
  Transmission Date: 20200409
  Serious: Yes (Life-Threatening, Hospitalization, Other)
  Sender: FDA-Public Use
  Company Number: US-BAYER-2019-179660

PATIENT
  Age: 41 Year
  Sex: Female

DRUGS (4)
  1. BAYER LOW DOSE [Suspect]
     Active Substance: ASPIRIN
     Indication: PRODUCT USED FOR UNKNOWN INDICATION
     Dosage: UNK
  2. HUMIRA [Suspect]
     Active Substance: ADALIMUMAB
     Indication: RHEUMATOID ARTHRITIS
     Dosage: 40 MG (40MG/0.8ML)
     Route: 058
     Dates: start: 20190823, end: 2019
  3. HYDROXYCHLOROQUINE [Concomitant]
     Active Substance: HYDROXYCHLOROQUINE
  4. RASUVO [Concomitant]
     Active Substance: METHOTREXATE SODIUM

REACTIONS (15)
  - Arthralgia [None]
  - Injection site pruritus [Recovered/Resolved]
  - Injection site bruising [Recovered/Resolved]
  - Injection site pain [Recovered/Resolved]
  - Pain [None]
  - Injection site erythema [Recovered/Resolved]
  - Pre-eclampsia [Unknown]
  - Mobility decreased [Unknown]
  - Perinatal depression [Recovering/Resolving]
  - Joint swelling [Recovering/Resolving]
  - Joint stiffness [Recovering/Resolving]
  - Myocardial infarction [None]
  - Haemoglobin decreased [Recovered/Resolved]
  - Fatigue [None]
  - Exposure during pregnancy [None]

NARRATIVE: CASE EVENT DATE: 2019
